FAERS Safety Report 10419849 (Version 1)
Quarter: 2014Q3

REPORT INFORMATION
  Report Type: Spontaneous
  Country: PL (occurrence: PL)
  Receive Date: 20140829
  Receipt Date: 20140829
  Transmission Date: 20150326
  Serious: Yes (Other)
  Sender: FDA-Public Use
  Company Number: PL-MYLAN-2014M1002938

PATIENT

DRUGS (2)
  1. OLANZAPINE. [Suspect]
     Active Substance: OLANZAPINE
     Indication: SCHIZOPHRENIA, PARANOID TYPE
     Dosage: SLOWLY INCREASED TO 15 MG/DAY AT BEDTIME (AT 12 WEEKS)
     Route: 065
  2. OLANZAPINE. [Suspect]
     Active Substance: OLANZAPINE
     Dosage: 20 MG/DAY AT BEDTIME (AT 13 WEEKS)
     Route: 065

REACTIONS (9)
  - Dyslipidaemia [Recovering/Resolving]
  - Liver injury [Recovering/Resolving]
  - Sedation [Unknown]
  - Nausea [Unknown]
  - Disturbance in attention [Unknown]
  - Hypertriglyceridaemia [Recovering/Resolving]
  - Abdominal pain [Unknown]
  - Transaminases increased [Recovered/Resolved]
  - Asthenia [Unknown]
